FAERS Safety Report 7729580-5 (Version None)
Quarter: 2011Q3

REPORT INFORMATION
  Report Type: 
  Country: None (occurrence: None)
  Receive Date: 20110906
  Receipt Date: 20110823
  Transmission Date: 20111222
  Serious: Yes (Other)
  Sender: FDA-Public Use
  Company Number: US-BAYER-201036877NA

PATIENT
  Age: 39 Year
  Sex: Female
  Weight: 97.506 kg

DRUGS (9)
  1. FLUOXETINE [Concomitant]
     Indication: DEPRESSION
     Dosage: UNK UNK, BID
     Dates: start: 20050101
  2. TYLENOL COLD [PARACETAMOL] [Concomitant]
     Dosage: UNK
     Dates: start: 20080701
  3. ZITHROMAX [Concomitant]
     Indication: SINUSITIS
     Dosage: UNK
     Dates: start: 20080801
  4. AUGMENTIN '125' [Concomitant]
     Indication: SINUSITIS
     Dosage: UNK
     Dates: start: 20080801
  5. DROSPIRENONE AND ETHINYL ESTRADIOL [Suspect]
     Indication: MENSTRUAL CYCLE MANAGEMENT
     Dosage: UNK
     Route: 048
     Dates: start: 20080701, end: 20081101
  6. METFORMIN HCL [Concomitant]
     Indication: OVARIAN CYST
     Dosage: UNK
     Dates: start: 20080701
  7. ULTRAM [Concomitant]
     Indication: PAIN
     Dosage: UNK
     Dates: start: 20080801
  8. NASONEX [Concomitant]
     Indication: SINUSITIS
     Dosage: UNK
     Dates: start: 20080801
  9. YASMIN [Suspect]
     Indication: MENSTRUAL CYCLE MANAGEMENT
     Dosage: UNK
     Route: 048
     Dates: start: 20060901, end: 20080601

REACTIONS (10)
  - VISION BLURRED [None]
  - PAIN [None]
  - THROMBOSIS [None]
  - FATIGUE [None]
  - INTRACRANIAL VENOUS SINUS THROMBOSIS [None]
  - PAPILLOEDEMA [None]
  - HEADACHE [None]
  - PARAESTHESIA [None]
  - DEEP VEIN THROMBOSIS [None]
  - ASTHENIA [None]
